FAERS Safety Report 9160689 (Version 1)
Quarter: 2013Q1

REPORT INFORMATION
  Report Type: Spontaneous
  Country: AU (occurrence: AU)
  Receive Date: 20130313
  Receipt Date: 20130313
  Transmission Date: 20140127
  Serious: Yes (Death)
  Sender: FDA-Public Use
  Company Number: AU-B.I. PHARMACEUTICALS,INC./RIDGEFIELD-2013-AU-00269AU

PATIENT
  Sex: Female

DRUGS (10)
  1. PRADAXA [Suspect]
     Indication: CEREBROVASCULAR ACCIDENT PROPHYLAXIS
     Dosage: 220 MG
     Dates: start: 20110709, end: 20130212
  2. PRADAXA [Suspect]
     Indication: ATRIAL FIBRILLATION
  3. ASPIRIN [Concomitant]
  4. COVERSYL [Concomitant]
  5. DIGOXIN [Concomitant]
  6. LIPEX [Concomitant]
  7. METOPROLOL [Concomitant]
  8. PROTOS [Concomitant]
  9. PANADOL OSTEO [Concomitant]
  10. LOSEC [Concomitant]

REACTIONS (1)
  - Cerebrovascular accident [Fatal]
